FAERS Safety Report 4731758-X (Version None)
Quarter: 2005Q3

REPORT INFORMATION
  Report Type: 
  Country: None (occurrence: None)
  Receive Date: 20050725
  Receipt Date: 20041019
  Transmission Date: 20060218
  Serious: Yes (Disabling, Other)
  Sender: FDA-Public Use
  Company Number: WAES 0306USA00799

PATIENT
  Age: 57 Year
  Sex: Female
  Weight: 89.8122 kg

DRUGS (4)
  1. VIOXX [Suspect]
     Dosage: 25 MG/DAILY/PO
     Route: 048
  2. PREMARIN [Concomitant]
  3. INDOMETHACIN [Concomitant]
  4. VERAPAMIL [Concomitant]

REACTIONS (4)
  - ADVERSE EVENT [None]
  - DIZZINESS [None]
  - HELICOBACTER INFECTION [None]
  - HYPERTENSIVE CRISIS [None]
